FAERS Safety Report 6223622-4 (Version None)
Quarter: 2009Q2

REPORT INFORMATION
  Report Type: 
  Country: None (occurrence: None)
  Receive Date: 20090611
  Receipt Date: 20090602
  Transmission Date: 20091009
  Serious: Yes (Hospitalization)
  Sender: FDA-Public Use
  Company Number: JP-JNJCH-2009015081

PATIENT
  Sex: Male

DRUGS (3)
  1. CETIRIZINE HYDROCHLORIDE [Suspect]
     Indication: ECZEMA
     Dosage: TEXT:10 MG
     Route: 048
  2. BETAMETHASONE BUTYRATE PROPIONATE [Concomitant]
     Indication: DRUG USE FOR UNKNOWN INDICATION
     Route: 065
  3. UREA [Concomitant]
     Indication: DRUG USE FOR UNKNOWN INDICATION
     Route: 065

REACTIONS (3)
  - ANAPHYLACTIC REACTION [None]
  - MOBILITY DECREASED [None]
  - MUSCULOSKELETAL DISCOMFORT [None]
